FAERS Safety Report 23235573 (Version 3)
Quarter: 2024Q1

REPORT INFORMATION
  Report Type: Spontaneous
  Country: US (occurrence: US)
  Receive Date: 20231128
  Receipt Date: 20240125
  Transmission Date: 20240410
  Serious: No
  Sender: FDA-Public Use
  Company Number: US-PFIZER INC-202300376522

PATIENT
  Age: 67 Year
  Sex: Female
  Weight: 73.469 kg

DRUGS (6)
  1. IBRANCE [Suspect]
     Active Substance: PALBOCICLIB
     Indication: Breast cancer metastatic
     Dosage: 100 MG, CYCLIC (ONCE DAILY FOR 21 DAYS, 7 DAYS OFF, THEN REPEAT)
     Dates: start: 202008, end: 20231101
  2. ANASTROZOLE [Suspect]
     Active Substance: ANASTROZOLE
     Indication: Breast cancer metastatic
     Dosage: 1 MG, ONCE DAILY
     Dates: start: 202008, end: 202311
  3. CITALOPRAM [Suspect]
     Active Substance: CITALOPRAM HYDROBROMIDE
     Indication: Depression
     Dosage: 20 MG, ONCE DAILY
     Dates: start: 2010
  4. CINACALCET [Suspect]
     Active Substance: CINACALCET
     Indication: Blood phosphorus
     Dosage: 30 MG ONE ON M/W/F
     Dates: start: 2022
  5. PHOSPHA 250 NEUTRAL [Suspect]
     Active Substance: POTASSIUM PHOSPHATE, MONOBASIC\SODIUM PHOSPHATE, DIBASIC, ANHYDROUS\SODIUM PHOSPHATE, MONOBASIC, MON
     Dosage: UNK
     Dates: start: 2022
  6. ATORVASTATIN [Suspect]
     Active Substance: ATORVASTATIN
     Dosage: UNK
     Dates: start: 2016

REACTIONS (1)
  - Neoplasm progression [Unknown]
